FAERS Safety Report 5313500-7 (Version None)
Quarter: 2007Q2

REPORT INFORMATION
  Report Type: 
  Country: None (occurrence: None)
  Receive Date: 20070424
  Receipt Date: 20070206
  Transmission Date: 20071010
  Serious: Yes (Hospitalization)
  Sender: FDA-Public Use
  Company Number: 2007-00326

PATIENT
  Sex: Male

DRUGS (1)
  1. VELCADE [Suspect]
     Indication: MANTLE CELL LYMPHOMA
     Dates: start: 20061201, end: 20070101

REACTIONS (3)
  - DIARRHOEA [None]
  - DISEASE PROGRESSION [None]
  - RESPIRATORY DISORDER [None]
